FAERS Safety Report 8979549 (Version 1)
Quarter: 2012Q4

REPORT INFORMATION
  Report Type: 
  Country: IT (occurrence: IT)
  Receive Date: 20121221
  Receipt Date: 20121221
  Transmission Date: 20130627
  Serious: Yes (Other)
  Sender: FDA-Public Use
  Company Number: IT-BAYER-2012-131524

PATIENT
  Age: 86 Year
  Sex: Female

DRUGS (7)
  1. CIPROXIN [Suspect]
     Indication: CYSTITIS
     Dosage: Daily dose 500 mg
     Route: 048
     Dates: start: 20120716, end: 20120722
  2. LANSOPRAZOLE [Suspect]
     Indication: EPIGASTRALGIA
     Dosage: Daily dose 15 mg
     Route: 048
     Dates: start: 20120716, end: 20120722
  3. XANAX [Concomitant]
     Indication: ANXIETY
     Dosage: UNK
     Route: 048
  4. ESILGAN [Concomitant]
     Indication: INSOMNIA
     Dosage: UNK
     Route: 048
  5. LASIX [Suspect]
     Indication: DIURETIC THERAPY
     Dosage: Daily dose 25 mg
     Route: 048
     Dates: start: 20120716, end: 20120722
  6. LASIX [Suspect]
     Indication: CYSTITIS
  7. LOSAZID [Concomitant]
     Indication: BLOOD PRESSURE HIGH

REACTIONS (10)
  - Loss of consciousness [Recovering/Resolving]
  - Malaise [Recovering/Resolving]
  - Headache [Recovering/Resolving]
  - Agitation [Recovering/Resolving]
  - Nausea [Recovering/Resolving]
  - Vomiting [Recovering/Resolving]
  - Asthenia [Recovering/Resolving]
  - Hypokalaemia [Recovering/Resolving]
  - Hyponatraemia [Recovering/Resolving]
  - Syncope [Recovering/Resolving]
